FAERS Safety Report 8213064-4 (Version None)
Quarter: 2012Q2

REPORT INFORMATION
  Report Type: 
  Country: None (occurrence: None)
  Receive Date: 20120228
  Receipt Date: 20110818
  Transmission Date: 20120825
  Serious: Yes (Other)
  Sender: FDA-Public Use
  Company Number: RB-31668-2011

PATIENT
  Age: 3 Year
  Sex: Female

DRUGS (1)
  1. SUBOXONE [Suspect]
     Indication: ACCIDENTAL EXPOSURE
     Dosage: (CHILD INGESTED 3 8MG TABLET)

REACTIONS (1)
  - ACCIDENTAL EXPOSURE [None]
